FAERS Safety Report 25368635 (Version 1)
Quarter: 2025Q2

REPORT INFORMATION
  Report Type: Spontaneous
  Country: NL (occurrence: NL)
  Receive Date: 20250528
  Receipt Date: 20250528
  Transmission Date: 20250717
  Serious: Yes (Hospitalization)
  Sender: FRESENIUS KABI
  Company Number: None

PATIENT
  Age: 60 Year
  Sex: Female
  Weight: 62.3 kg

DRUGS (13)
  1. CARBOPLATIN [Suspect]
     Active Substance: CARBOPLATIN
     Indication: Lung cancer metastatic
     Dates: start: 20250310, end: 20250423
  2. PEMETREXED [Suspect]
     Active Substance: PEMETREXED
     Indication: Lung cancer metastatic
     Dates: start: 20250310, end: 20250423
  3. PEMBROLIZUMAB [Suspect]
     Active Substance: PEMBROLIZUMAB
     Indication: Lung cancer metastatic
     Dates: start: 20250310, end: 20250423
  4. MAGNESIUMHYDROXIDE Chewable tablet 724MG / Brand name not specified [Concomitant]
     Indication: Product used for unknown indication
     Route: 048
  5. PANTOPRAZOLE TABLET MSR 20MG / Brand name not specified [Concomitant]
     Indication: Product used for unknown indication
     Route: 048
  6. INSULIN LISPRO 100E/ML solution for injection / Brand name not specifi [Concomitant]
     Indication: Product used for unknown indication
  7. INSULIN DEGLUDEC 100E/ML solution for injection / Brand name not speci [Concomitant]
     Indication: Product used for unknown indication
  8. ACETYLSALICYLIC ACID TABLET  80MG / Brand name not specified [Concomitant]
     Indication: Product used for unknown indication
     Route: 048
  9. HYDROXOCOBALAMINE solution for injection  500UG/ML (HCL) / Brand name [Concomitant]
     Indication: Product used for unknown indication
  10. Folic acid TABLET 0.5MG / Brand name not specified [Concomitant]
     Indication: Product used for unknown indication
     Route: 048
  11. ATORVASTATIN TABLET 40MG / Brand name not specified [Concomitant]
     Indication: Product used for unknown indication
     Route: 048
  12. GLUCAGON NASAL POWDER 3MG / Brand name not specified [Concomitant]
     Indication: Product used for unknown indication
     Route: 045
  13. LEVETIRACETAM TABLET FO  500MG / Brand name not specified [Concomitant]
     Indication: Product used for unknown indication
     Route: 048

REACTIONS (1)
  - Renal failure [Recovering/Resolving]
